APPROVED DRUG PRODUCT: DEFEROXAMINE MESYLATE
Active Ingredient: DEFEROXAMINE MESYLATE
Strength: 500MG/VIAL
Dosage Form/Route: INJECTABLE;INJECTION
Application: A078718 | Product #001 | TE Code: AP
Applicant: FRESENIUS KABI USA LLC
Approved: Sep 15, 2009 | RLD: No | RS: No | Type: RX